FAERS Safety Report 21790106 (Version 1)
Quarter: 2022Q4

REPORT INFORMATION
  Report Type: Spontaneous
  Country: FR (occurrence: FR)
  Receive Date: 20221228
  Receipt Date: 20221228
  Transmission Date: 20230113
  Serious: Yes (Hospitalization, Other)
  Sender: FDA-Public Use
  Company Number: None

PATIENT
  Age: 66 Year
  Sex: Female
  Weight: 68 kg

DRUGS (5)
  1. METHOTREXATE [Suspect]
     Active Substance: METHOTREXATE
     Indication: B-cell lymphoma
     Dosage: 6200 MILLIGRAM, TOTAL
     Route: 042
     Dates: start: 20220420
  2. METHOTREXATE [Suspect]
     Active Substance: METHOTREXATE
     Dosage: 3500 MILLIGRAM/SQ. METER,CYCLICAL
     Route: 042
     Dates: start: 20220420, end: 20221012
  3. VINCRISTINE SULFATE [Concomitant]
     Active Substance: VINCRISTINE SULFATE
     Indication: B-cell lymphoma
     Dosage: 2 MILLIGRAM, CYCLICAL
     Route: 042
     Dates: start: 20220420
  4. PROCARBAZINE HYDROCHLORIDE [Concomitant]
     Active Substance: PROCARBAZINE HYDROCHLORIDE
     Indication: B-cell lymphoma
     Dosage: 100 MILLIGRAM/SQ. METER, CYCLICAL
     Route: 042
     Dates: start: 20220420
  5. RITUXIMAB [Concomitant]
     Active Substance: RITUXIMAB
     Indication: B-cell lymphoma
     Dosage: 375 MILLIGRAM/SQ. METER, CYCLICAL
     Route: 042
     Dates: start: 20220420

REACTIONS (2)
  - Hepatic cytolysis [Recovered/Resolved]
  - Hypoaesthesia [Recovering/Resolving]

NARRATIVE: CASE EVENT DATE: 20220422
